FAERS Safety Report 5646163-1 (Version None)
Quarter: 2008Q1

REPORT INFORMATION
  Report Type: 
  Country: None (occurrence: None)
  Receive Date: 20080227
  Receipt Date: 20080220
  Transmission Date: 20080703
  Serious: Yes (Other)
  Sender: FDA-Public Use
  Company Number: 2008003704

PATIENT
  Age: 57 Year
  Sex: Female

DRUGS (1)
  1. REACTINE EXTRA STRENGTH (CETIRIZINE HYDROCHLORIDE) [Suspect]
     Indication: HYPERSENSITIVITY
     Dosage: 1 CAPLET, EVERYDAY, ORAL
     Route: 048
     Dates: start: 20010220

REACTIONS (1)
  - OSTEOPOROSIS [None]
